FAERS Safety Report 19700883 (Version 5)
Quarter: 2023Q2

REPORT INFORMATION
  Report Type: Report from Study
  Country: US (occurrence: US)
  Receive Date: 20210813
  Receipt Date: 20230509
  Transmission Date: 20230722
  Serious: Yes (Hospitalization)
  Sender: FDA-Public Use
  Company Number: US-PFIZER INC-202101008719

PATIENT
  Age: 61 Year
  Sex: Female
  Weight: 45.351 kg

DRUGS (16)
  1. BINIMETINIB [Suspect]
     Active Substance: BINIMETINIB
     Indication: Colon cancer
     Dosage: 45 MG, 2X/DAY
     Route: 048
     Dates: start: 20210708, end: 20210728
  2. PEMBROLIZUMAB [Suspect]
     Active Substance: PEMBROLIZUMAB
     Indication: Colon cancer
     Dosage: 200 MG, Q21 DAYS
     Route: 042
     Dates: start: 20210708, end: 20210728
  3. TUMS [Concomitant]
     Active Substance: CALCIUM CARBONATE
     Dosage: 1000 MG, EVERY 2 HOURS PRN
     Route: 048
     Dates: start: 20210716
  4. ZYRTEC [Concomitant]
     Active Substance: CETIRIZINE HYDROCHLORIDE
     Indication: Rhinitis allergic
     Dosage: 10 MG, DAILY
     Route: 048
  5. DURAGESIC [Concomitant]
     Active Substance: FENTANYL
     Dosage: PLACE 1 PATCH ONTO THE SKIN EVERY 72 HOURS FOR PT HAS FENTANLY PATCH ON NOW
     Route: 062
  6. FLONASE [Concomitant]
     Active Substance: FLUTICASONE PROPIONATE
     Dosage: 1 SPRAY BY NASAL ROUTE
     Route: 045
  7. NORCO [Concomitant]
     Active Substance: ACETAMINOPHEN\HYDROCODONE BITARTRATE
     Indication: Pain
     Dosage: TAKE 1-2 TABLETS BY MOUTH EVERY 6 HOURS AS NEEDED FOR PAIN
     Route: 048
  8. ENSURE [Concomitant]
     Active Substance: AMINO ACIDS\DEXTROSE\ELECTROLYTES NOS\SOYBEAN OIL\VITAMINS
     Indication: Weight decreased
     Dosage: TAKE 237 MLS BY MOUTH 3 TIMES DALLY (WITH MEALS)
     Route: 048
  9. ENULOSE [Concomitant]
     Active Substance: LACTULOSE
     Indication: Constipation
     Dosage: TAKE 10-20 G BY MOUTH DAILY AS NEEDED
     Route: 048
  10. LIDOCAINE VISCOUS [Concomitant]
     Active Substance: LIDOCAINE HYDROCHLORIDE
     Indication: Oral pain
     Dosage: APPLY 5 ML THREE TIMES DAILY BEFORE MEAL(S) FOR 10 DAYS AS NEEDED
     Route: 048
  11. REMERON [Concomitant]
     Active Substance: MIRTAZAPINE
     Dosage: TAKE 15 MG BY MOUTH NIGHTLY AT BEDTIME
     Route: 048
  12. ZOFRAN [Concomitant]
     Active Substance: ONDANSETRON HYDROCHLORIDE
     Indication: Nausea
     Dosage: TAKE 8 MG BY MOUTH 4 TIMES DAILY AS NEEDED
     Route: 048
  13. ZOFRAN [Concomitant]
     Active Substance: ONDANSETRON HYDROCHLORIDE
     Indication: Vomiting
  14. PHENERGAN [Concomitant]
     Active Substance: PROMETHAZINE HYDROCHLORIDE
     Indication: Nausea
     Dosage: 25 MG BY MOUTH EVERY 8 HOURS AS NEEDED
     Route: 048
  15. PHENERGAN [Concomitant]
     Active Substance: PROMETHAZINE HYDROCHLORIDE
     Indication: Vomiting
  16. SENOKOT [Concomitant]
     Active Substance: SENNOSIDES
     Indication: Constipation
     Dosage: 8.6 MG, 2X/DAY
     Route: 048

REACTIONS (3)
  - Dyspepsia [Recovered/Resolved]
  - Hypokalaemia [Recovered/Resolved]
  - Hypophosphataemia [Recovered/Resolved]

NARRATIVE: CASE EVENT DATE: 20210805
